FAERS Safety Report 13576486 (Version 1)
Quarter: 2017Q2

REPORT INFORMATION
  Report Type: Report from Study
  Country: HN (occurrence: HN)
  Receive Date: 20170524
  Receipt Date: 20170524
  Transmission Date: 20170830
  Serious: Yes (Other)
  Sender: FDA-Public Use
  Company Number: PHHY2017HN076321

PATIENT
  Age: 57 Year
  Sex: Male

DRUGS (2)
  1. EXFORGE [Suspect]
     Active Substance: AMLODIPINE BESYLATE\VALSARTAN
     Indication: PRODUCT USED FOR UNKNOWN INDICATION
     Dosage: (AMLODIPINE 5 MG, VALSARTAN 160 MG)
     Route: 065
  2. GALVUS MET [Suspect]
     Active Substance: METFORMIN HYDROCHLORIDE\VILDAGLIPTIN
     Indication: PRODUCT USED FOR UNKNOWN INDICATION
     Dosage: (METFORMIN 500 MG, VILDAGLIPTIN 50 MG)
     Route: 065

REACTIONS (4)
  - Diabetes mellitus inadequate control [Unknown]
  - Depressed mood [Unknown]
  - Blood glucose decreased [Unknown]
  - Malaise [Unknown]
